FAERS Safety Report 9059605 (Version 2)
Quarter: 2013Q2

REPORT INFORMATION
  Report Type: Spontaneous
  Country: US (occurrence: US)
  Receive Date: 20130212
  Receipt Date: 20130405
  Transmission Date: 20140414
  Serious: Yes (Other)
  Sender: FDA-Public Use
  Company Number: US-AMGEN-USASP2013008399

PATIENT
  Age: 68 Year
  Sex: Female

DRUGS (1)
  1. ENBREL [Suspect]
     Indication: PSORIATIC ARTHROPATHY
     Dosage: 50 MG, QWK
     Route: 058
     Dates: start: 201110

REACTIONS (7)
  - Cardiac disorder [Not Recovered/Not Resolved]
  - Local swelling [Recovered/Resolved]
  - Hepatomegaly [Unknown]
  - Splenomegaly [Unknown]
  - Cardiac failure congestive [Not Recovered/Not Resolved]
  - Oral disorder [Unknown]
  - Oropharyngeal pain [Recovered/Resolved]
